FAERS Safety Report 5670463-2 (Version None)
Quarter: 2008Q1

REPORT INFORMATION
  Report Type: 
  Country: None (occurrence: None)
  Receive Date: 20080318
  Receipt Date: 20080305
  Transmission Date: 20080703
  Serious: Yes (Death, Hospitalization, Other)
  Sender: FDA-Public Use
  Company Number: AU-ELI_LILLY_AND_COMPANY-AU200803000704

PATIENT
  Age: 72 Year
  Sex: Male

DRUGS (1)
  1. CIALIS [Suspect]
     Indication: ERECTILE DYSFUNCTION
     Dosage: 20 MG, UNKNOWN
     Route: 048
     Dates: start: 20080201

REACTIONS (5)
  - DEATH [None]
  - HEADACHE [None]
  - ISCHAEMIA [None]
  - PALPITATIONS [None]
  - RENAL DISORDER [None]
